FAERS Safety Report 11692648 (Version 7)
Quarter: 2017Q1

REPORT INFORMATION
  Report Type: Spontaneous
  Country: US (occurrence: US)
  Receive Date: 20151103
  Receipt Date: 20170124
  Transmission Date: 20170428
  Serious: Yes (Hospitalization, Congenital Anomaly, Other)
  Sender: FDA-Public Use
  Company Number: PHEH2015US022188

PATIENT
  Sex: Female

DRUGS (1)
  1. ZOFRAN ODT [Suspect]
     Active Substance: ONDANSETRON HYDROCHLORIDE
     Indication: FOETAL EXPOSURE DURING PREGNANCY
     Dosage: MOTHER^S DOSE: 4 MG, QD
     Route: 064

REACTIONS (36)
  - Patent ductus arteriosus [Unknown]
  - Pneumonia [Unknown]
  - Anhedonia [Unknown]
  - Dermatitis diaper [Unknown]
  - Heart disease congenital [Unknown]
  - Failure to thrive [Unknown]
  - Pain [Unknown]
  - Decreased appetite [Unknown]
  - Candida nappy rash [Unknown]
  - Anxiety [Unknown]
  - Multiple congenital abnormalities [Unknown]
  - Foetal exposure during pregnancy [Unknown]
  - Ear infection [Not Recovered/Not Resolved]
  - Cough [Unknown]
  - Congenital anomaly [Unknown]
  - Cleft palate [Unknown]
  - Bronchiolitis [Unknown]
  - Injury [Unknown]
  - Urinary tract infection [Unknown]
  - Upper respiratory tract infection [Unknown]
  - Eustachian tube dysfunction [Unknown]
  - Oral candidiasis [Unknown]
  - Diarrhoea [Unknown]
  - Dysmorphism [Unknown]
  - Cyanosis neonatal [Unknown]
  - Emotional distress [Unknown]
  - Rhinorrhoea [Unknown]
  - Dyspnoea [Unknown]
  - Attention deficit/hyperactivity disorder [Not Recovered/Not Resolved]
  - Cardiac murmur [Unknown]
  - Asthma [Not Recovered/Not Resolved]
  - Otitis media [Unknown]
  - Sleep apnoea syndrome [Unknown]
  - Cystic fibrosis [Unknown]
  - Neonatal respiratory distress syndrome [Unknown]
  - Gastroenteritis [Unknown]
